FAERS Safety Report 22818240 (Version 3)
Quarter: 2024Q4

REPORT INFORMATION
  Report Type: Spontaneous
  Country: US (occurrence: US)
  Receive Date: 20230814
  Receipt Date: 20241031
  Transmission Date: 20250115
  Serious: No
  Sender: BIOGEN
  Company Number: US-BIOGEN-2023BI01215676

PATIENT
  Sex: Male

DRUGS (1)
  1. TYSABRI [Suspect]
     Active Substance: NATALIZUMAB
     Indication: Multiple sclerosis
     Route: 050
     Dates: start: 20141030

REACTIONS (6)
  - Therapeutic response unexpected [Not Recovered/Not Resolved]
  - Multiple sclerosis [Unknown]
  - Arthropod bite [Unknown]
  - Lyme disease [Recovered/Resolved]
  - Feeling abnormal [Recovered/Resolved]
  - Infusion related reaction [Unknown]

NARRATIVE: CASE EVENT DATE: 20140101
